FAERS Safety Report 11895785 (Version 1)
Quarter: 2016Q1

REPORT INFORMATION
  Report Type: Spontaneous
  Country: US (occurrence: None)
  Receive Date: 20160106
  Receipt Date: 20160106
  Transmission Date: 20160526
  Serious: No
  Sender: FDA-Public Use
  Company Number: None

PATIENT

DRUGS (2)
  1. MS CONTIN [Suspect]
     Active Substance: MORPHINE SULFATE
     Route: 048
  2. KADIAN [Suspect]
     Active Substance: MORPHINE SULFATE
     Route: 048

REACTIONS (2)
  - Transcription medication error [None]
  - Drug dispensing error [None]
